FAERS Safety Report 5106431-9 (Version None)
Quarter: 2006Q3

REPORT INFORMATION
  Report Type: 
  Country: None (occurrence: None)
  Receive Date: 20060918
  Receipt Date: 20060912
  Transmission Date: 20061208
  Serious: Yes (Hospitalization)
  Sender: FDA-Public Use
  Company Number: NL-ROCHE-462755

PATIENT
  Age: 60 Year
  Sex: Female
  Weight: 83.6 kg

DRUGS (2)
  1. INTERFERON ALFA [Suspect]
     Route: 065
     Dates: start: 20060327
  2. PROLEUKIN [Suspect]
     Route: 065
     Dates: start: 20060527

REACTIONS (1)
  - DEHYDRATION [None]
